FAERS Safety Report 24964268 (Version 4)
Quarter: 2025Q2

REPORT INFORMATION
  Report Type: Spontaneous
  Country: US (occurrence: US)
  Receive Date: 20250213
  Receipt Date: 20250527
  Transmission Date: 20250717
  Serious: No
  Sender: AMGEN
  Company Number: US-AMGEN-USASP2025024985

PATIENT
  Age: 86 Year
  Sex: Female

DRUGS (2)
  1. REPATHA [Suspect]
     Active Substance: EVOLOCUMAB
     Indication: Blood cholesterol abnormal
     Dosage: 140 MILLIGRAM, Q2WK (TWICE A MONTH)
     Route: 065
  2. REPATHA [Suspect]
     Active Substance: EVOLOCUMAB
     Dosage: 140 MILLIGRAM, Q2WK
     Route: 065

REACTIONS (15)
  - Hypotension [Unknown]
  - Product preparation error [Unknown]
  - Speech disorder [Unknown]
  - Therapeutic response unexpected [Unknown]
  - Musculoskeletal discomfort [Not Recovered/Not Resolved]
  - Poor quality product administered [Unknown]
  - Device difficult to use [Unknown]
  - Wrong technique in product usage process [Unknown]
  - Abdominal discomfort [Unknown]
  - Hunger [Unknown]
  - Jaw disorder [Unknown]
  - Therapy interrupted [Unknown]
  - Hypertension [Unknown]
  - Diarrhoea [Unknown]
  - Malaise [Unknown]

NARRATIVE: CASE EVENT DATE: 20250101
